FAERS Safety Report 8083450-4 (Version None)
Quarter: 2012Q1

REPORT INFORMATION
  Report Type: 
  Country: None (occurrence: None)
  Receive Date: 20120127
  Receipt Date: 20110126
  Transmission Date: 20120608
  Serious: No
  Sender: FDA-Public Use
  Company Number: US-ABBOTT-11P-163-0700749-00

PATIENT
  Age: 23 Year
  Sex: Female

DRUGS (5)
  1. FOLIC ACID [Concomitant]
     Indication: PRODUCT USED FOR UNKNOWN INDICATION
  2. IRON SUPPLEMENTS [Concomitant]
     Indication: MINERAL SUPPLEMENTATION
  3. HUMIRA [Suspect]
     Indication: CROHN'S DISEASE
     Dates: start: 20100701
  4. ZOLOFT [Concomitant]
     Indication: ANXIETY
     Dosage: AT NIGHT
  5. KLONOPIN [Concomitant]
     Indication: ANXIETY
     Dosage: AS NEEDED

REACTIONS (4)
  - OROPHARYNGEAL PAIN [None]
  - COUGH [None]
  - MALAISE [None]
  - FATIGUE [None]
